FAERS Safety Report 9225661 (Version 1)
Quarter: 2013Q1

REPORT INFORMATION
  Report Type: Spontaneous
  Country: US (occurrence: None)
  Receive Date: 20120914
  Receipt Date: 20120914
  Transmission Date: 20140127
  Serious: Yes (Other)
  Sender: FDA-Public Use
  Company Number: JPI-P-017990

PATIENT
  Age: 44 Year
  Sex: Female
  Weight: 89.81 kg

DRUGS (3)
  1. XYREM (500 MILLIGRAM/MILLILITERS, SOLUTION) (SODIUM OXYBATE) [Suspect]
     Indication: CATAPLEXY
     Route: 048
     Dates: start: 201103, end: 2011
  2. ARMODAFINIL (UNKNOWN) [Concomitant]
  3. ZONISAMIDE (UNKNOWN) [Concomitant]

REACTIONS (3)
  - Fall [None]
  - Disorientation [None]
  - Foot fracture [None]
